FAERS Safety Report 16597367 (Version 2)
Quarter: 2019Q3

REPORT INFORMATION
  Report Type: Spontaneous
  Country: US (occurrence: US)
  Receive Date: 20190719
  Receipt Date: 20190904
  Transmission Date: 20191004
  Serious: No
  Sender: FDA-Public Use
  Company Number: US-PFIZER INC-2019303984

PATIENT
  Age: 58 Year
  Sex: Male
  Weight: 81.65 kg

DRUGS (1)
  1. ADVIL [Suspect]
     Active Substance: IBUPROFEN
     Indication: SWELLING
     Dosage: 200 MG, 2X/DAY
     Route: 048
     Dates: start: 20190705, end: 20190707

REACTIONS (4)
  - Rash generalised [Not Recovered/Not Resolved]
  - Pruritus [Unknown]
  - Intentional product misuse [Unknown]
  - Erythema [Unknown]

NARRATIVE: CASE EVENT DATE: 20190705
